FAERS Safety Report 4712273-6 (Version None)
Quarter: 2005Q3

REPORT INFORMATION
  Report Type: 
  Country: None (occurrence: None)
  Receive Date: 20050712
  Receipt Date: 20050706
  Transmission Date: 20060218
  Serious: Yes (Other)
  Sender: FDA-Public Use
  Company Number: US-GLAXOSMITHKLINE-B0387282A

PATIENT
  Age: 45 Year
  Sex: Male

DRUGS (3)
  1. COMBIVIR [Suspect]
     Indication: VIRAL INFECTION
     Dosage: 2TAB PER DAY
     Route: 048
     Dates: start: 20020501
  2. INDINAVIR SULFATE [Suspect]
     Indication: VIRAL INFECTION
     Dosage: 400MG UNKNOWN
     Route: 048
     Dates: start: 20020501
  3. RITONAVIR [Suspect]
     Indication: VIRAL INFECTION
     Dosage: 100MG UNKNOWN
     Route: 048
     Dates: start: 20020501

REACTIONS (5)
  - DIARRHOEA [None]
  - GASTROINTESTINAL DISORDER [None]
  - GENERAL PHYSICAL HEALTH DETERIORATION [None]
  - HYPERTHYROIDISM [None]
  - WEIGHT DECREASED [None]
